FAERS Safety Report 16164587 (Version 2)
Quarter: 2019Q2

REPORT INFORMATION
  Report Type: Spontaneous
  Country: DE (occurrence: DE)
  Receive Date: 20190405
  Receipt Date: 20190508
  Transmission Date: 20190711
  Serious: Yes (Life-Threatening, Hospitalization)
  Sender: FDA-Public Use
  Company Number: DE-ALLERGAN-1914688US

PATIENT
  Sex: Male

DRUGS (2)
  1. KREON [Suspect]
     Active Substance: PANCRELIPASE
     Indication: PANCREATIC FAILURE
     Dosage: 75000 UNITS, QD
     Route: 065
  2. PANZYTRAT (AMYLASE\LIPASE\PROTEASE) [Suspect]
     Active Substance: AMYLASE\LIPASE\PROTEASE
     Indication: PANCREATIC FAILURE
     Dosage: 150000 UNITS, QD
     Route: 065

REACTIONS (5)
  - Liver abscess [Unknown]
  - Gastrointestinal inflammation [Unknown]
  - Intestinal mass [Unknown]
  - Weight decreased [Recovering/Resolving]
  - Fibrosing colonopathy [Unknown]
